FAERS Safety Report 21699998 (Version 1)
Quarter: 2022Q4

REPORT INFORMATION
  Report Type: Spontaneous
  Country: US (occurrence: None)
  Receive Date: 20221207
  Receipt Date: 20221207
  Transmission Date: 20230113
  Serious: Yes (Hospitalization)
  Sender: FDA-Public Use
  Company Number: None

PATIENT
  Age: 65 Year
  Sex: Male
  Weight: 69 kg

DRUGS (1)
  1. PEMBROLIZUMAB [Suspect]
     Active Substance: PEMBROLIZUMAB
     Indication: Gastrointestinal adenocarcinoma
     Dosage: OTHER STRENGTH : 50MG/VIL;?FREQUENCY : ONCE;?
     Route: 042
     Dates: start: 20190101, end: 20221017

REACTIONS (4)
  - Muscular weakness [None]
  - Muscle spasms [None]
  - Dyspnoea [None]
  - Myalgia [None]

NARRATIVE: CASE EVENT DATE: 20221026
